FAERS Safety Report 13088656 (Version 1)
Quarter: 2017Q1

REPORT INFORMATION
  Report Type: Report from Study
  Country: None (occurrence: CO)
  Receive Date: 20170105
  Receipt Date: 20170105
  Transmission Date: 20170428
  Serious: Yes (Death, Hospitalization)
  Sender: FDA-Public Use
  Company Number: CO-ABBVIE-16K-036-1817360-00

PATIENT
  Age: 69 Year
  Sex: Male
  Weight: 67 kg

DRUGS (1)
  1. HUMIRA [Suspect]
     Active Substance: ADALIMUMAB
     Indication: CROHN^S DISEASE
     Route: 058
     Dates: start: 20140107, end: 20161204

REACTIONS (2)
  - Bacterial abdominal infection [Not Recovered/Not Resolved]
  - Post procedural complication [Fatal]

NARRATIVE: CASE EVENT DATE: 20161210
